FAERS Safety Report 24878187 (Version 2)
Quarter: 2025Q1

REPORT INFORMATION
  Report Type: Spontaneous
  Country: US (occurrence: US)
  Receive Date: 20250123
  Receipt Date: 20250124
  Transmission Date: 20250409
  Serious: Yes (Other)
  Sender: BIOCON
  Company Number: US-MIMS-BCONMC-10649

PATIENT

DRUGS (1)
  1. SEMGLEE (INSULIN GLARGINE-YFGN) [Suspect]
     Active Substance: INSULIN GLARGINE-YFGN
     Indication: Type 2 diabetes mellitus
     Dosage: 44 UNITS/ML, QD
     Route: 058

REACTIONS (2)
  - Device loosening [Unknown]
  - Device occlusion [Unknown]
